FAERS Safety Report 8221986 (Version 4)
Quarter: 2014Q1

REPORT INFORMATION
  Report Type: Spontaneous
  Country: GB (occurrence: GB)
  Receive Date: 20111102
  Receipt Date: 20140210
  Transmission Date: 20141002
  Serious: Yes (Other)
  Sender: FDA-Public Use
  Company Number: PHFR2003GB01466

PATIENT
  Age: 49 Year
  Sex: Male

DRUGS (8)
  1. CLOZARIL [Suspect]
     Indication: SCHIZOPHRENIA
     Dosage: 650 MG DAILY
     Route: 048
     Dates: start: 19901119, end: 1991
  2. CLOZARIL [Suspect]
     Dosage: 650 MG DAILY
     Route: 048
     Dates: start: 1995
  3. CLOZARIL [Suspect]
     Dosage: 675 MG/DAY
     Route: 048
  4. CLOZARIL [Suspect]
     Dosage: UNK UKN, UNK
     Route: 048
     Dates: start: 20010701
  5. LANSOPRAZOLE [Concomitant]
     Dosage: 30 MG/DAY
     Route: 048
  6. ENALAPRIL [Concomitant]
     Dosage: 5 MG/DAY
     Route: 048
  7. FRUSEMIDE [Concomitant]
     Dosage: 80 MG/DAY
     Route: 048
  8. LACTULOSE [Concomitant]
     Dosage: 30 ML/DAY
     Route: 048

REACTIONS (4)
  - Chronic lymphocytic leukaemia [Not Recovered/Not Resolved]
  - White blood cell count increased [Not Recovered/Not Resolved]
  - Lymphocytosis [Not Recovered/Not Resolved]
  - Eosinophil count decreased [Unknown]
